FAERS Safety Report 6540908-4 (Version None)
Quarter: 2010Q1

REPORT INFORMATION
  Report Type: 
  Country: None (occurrence: None)
  Receive Date: 20100118
  Receipt Date: 20100114
  Transmission Date: 20100710
  Serious: Yes (Death, Other)
  Sender: FDA-Public Use
  Company Number: PHHY2009FR32783

PATIENT
  Sex: Male

DRUGS (7)
  1. LEPONEX [Suspect]
     Indication: DEPRESSION
     Dosage: 1 DF, TID
     Route: 048
     Dates: start: 20090428
  2. LEPONEX [Suspect]
     Indication: SCHIZOPHRENIA, PARANOID TYPE
  3. LEVOTHYROXINE SODIUM [Concomitant]
     Indication: THYROID DISORDER
     Dosage: 1 DF,DAILY
  4. FLUANXOL [Concomitant]
     Indication: SCHIZOPHRENIA, PARANOID TYPE
  5. DEPAKOTE [Concomitant]
     Indication: MANIA
     Dosage: 4 DF, DAILY
  6. VALIUM [Concomitant]
     Indication: ANXIETY
     Dosage: 40 DF, DAILY
  7. STILNOX [Concomitant]
     Indication: ANXIETY
     Dosage: 1 DF, DAILY

REACTIONS (8)
  - BALANCE DISORDER [None]
  - BLOOD LACTATE DEHYDROGENASE INCREASED [None]
  - BLOOD TRIGLYCERIDES INCREASED [None]
  - FALL [None]
  - GENERAL PHYSICAL HEALTH DETERIORATION [None]
  - IMPAIRED SELF-CARE [None]
  - MOVEMENT DISORDER [None]
  - SUDDEN DEATH [None]
